FAERS Safety Report 12492726 (Version 1)
Quarter: 2016Q2

REPORT INFORMATION
  Report Type: Not Available
  Country: None (occurrence: US)
  Receive Date: 20160623
  Receipt Date: 20160623
  Transmission Date: 20160815
  Serious: No
  Sender: FDA-Public Use
  Company Number: US-AKORN-17141

PATIENT
  Sex: Female

DRUGS (1)
  1. CLOBETASOL PROPIONATE CREAM [Suspect]
     Active Substance: CLOBETASOL PROPIONATE

REACTIONS (5)
  - Erythema [None]
  - Skin swelling [None]
  - Pruritus [None]
  - Application site dermatitis [None]
  - Skin burning sensation [None]
